FAERS Safety Report 14915907 (Version 1)
Quarter: 2018Q2

REPORT INFORMATION
  Report Type: Spontaneous
  Country: US (occurrence: US)
  Receive Date: 20180518
  Receipt Date: 20180518
  Transmission Date: 20180711
  Serious: No
  Sender: FDA-Public Use
  Company Number: PHEH2018US019239

PATIENT
  Sex: Female

DRUGS (1)
  1. TERAZOSIN HCL CAPSULES [Suspect]
     Active Substance: TERAZOSIN HYDROCHLORIDE
     Indication: PRODUCT USED FOR UNKNOWN INDICATION
     Route: 065

REACTIONS (6)
  - Vision blurred [Unknown]
  - Abdominal pain upper [Unknown]
  - Nausea [Unknown]
  - Eye irritation [Unknown]
  - Eye pruritus [Unknown]
  - Arthralgia [Unknown]
